FAERS Safety Report 12890570 (Version 1)
Quarter: 2016Q4

REPORT INFORMATION
  Report Type: Spontaneous
  Country: US (occurrence: US)
  Receive Date: 20161027
  Receipt Date: 20161027
  Transmission Date: 20170207
  Serious: No
  Sender: FDA-Public Use
  Company Number: US-JAZZ-2016-US-015578

PATIENT
  Sex: Female

DRUGS (29)
  1. XYREM [Suspect]
     Active Substance: SODIUM OXYBATE
     Dosage: 3.75 G, BID
     Route: 048
     Dates: start: 201603
  2. PROAIR HFA [Concomitant]
     Active Substance: ALBUTEROL SULFATE
  3. CRESTOR [Concomitant]
     Active Substance: ROSUVASTATIN CALCIUM
  4. XYREM [Suspect]
     Active Substance: SODIUM OXYBATE
     Indication: SOMNOLENCE
     Dosage: 2.25 G, BID
     Route: 048
     Dates: start: 201512, end: 201512
  5. NEURONTIN [Concomitant]
     Active Substance: GABAPENTIN
  6. WELLBUTRIN XL [Concomitant]
     Active Substance: BUPROPION HYDROCHLORIDE
  7. ZOLOFT [Concomitant]
     Active Substance: SERTRALINE HYDROCHLORIDE
  8. REQUIP [Concomitant]
     Active Substance: ROPINIROLE HYDROCHLORIDE
  9. REMICADE [Concomitant]
     Active Substance: INFLIXIMAB
  10. BACLOFEN. [Concomitant]
     Active Substance: BACLOFEN
  11. CELEBREX [Concomitant]
     Active Substance: CELECOXIB
  12. FOLIC ACID. [Concomitant]
     Active Substance: FOLIC ACID
  13. WELLBUTRIN SR [Concomitant]
     Active Substance: BUPROPION HYDROCHLORIDE
  14. MODAFINIL. [Concomitant]
     Active Substance: MODAFINIL
  15. SUBOXONE [Concomitant]
     Active Substance: BUPRENORPHINE HYDROCHLORIDE\NALOXONE HYDROCHLORIDE
  16. ADDERALL [Concomitant]
     Active Substance: AMPHETAMINE ASPARTATE\AMPHETAMINE SULFATE\DEXTROAMPHETAMINE SACCHARATE\DEXTROAMPHETAMINE SULFATE
  17. BETAMETHASONE DIPROPIONATE. [Concomitant]
     Active Substance: BETAMETHASONE DIPROPIONATE
  18. CALTRATE WITH VITAMIN D [Concomitant]
     Active Substance: CALCIUM CARBONATE\CHOLECALCIFEROL
  19. CLARITIN [Concomitant]
     Active Substance: LORATADINE
  20. TYLENOL ARTHRITIS ER [Concomitant]
  21. VECTICAL [Concomitant]
     Active Substance: CALCITRIOL
  22. LUNESTA [Concomitant]
     Active Substance: ESZOPICLONE
  23. XYREM [Suspect]
     Active Substance: SODIUM OXYBATE
     Dosage: 3 G, BID
     Route: 048
     Dates: start: 201512, end: 201603
  24. MYRBETRIQ ER [Concomitant]
  25. DOXEPIN [Concomitant]
     Active Substance: DOXEPIN
  26. RESTASIS [Concomitant]
     Active Substance: CYCLOSPORINE
  27. METHOTREXATE. [Concomitant]
     Active Substance: METHOTREXATE
  28. METHOCARBAMOL. [Concomitant]
     Active Substance: METHOCARBAMOL
  29. VESICARE [Concomitant]
     Active Substance: SOLIFENACIN SUCCINATE

REACTIONS (2)
  - Therapeutic response unexpected [Unknown]
  - Pre-existing condition improved [Unknown]
